FAERS Safety Report 9032844 (Version 3)
Quarter: 2013Q2

REPORT INFORMATION
  Report Type: Spontaneous
  Country: US (occurrence: US)
  Receive Date: 20130128
  Receipt Date: 20130605
  Transmission Date: 20140414
  Serious: No
  Sender: FDA-Public Use
  Company Number: US-BIOGENIDEC-2013BI006465

PATIENT
  Age: 50 Year
  Sex: Female

DRUGS (1)
  1. TYSABRI [Suspect]
     Indication: MULTIPLE SCLEROSIS
     Route: 042
     Dates: start: 20120201, end: 20130109

REACTIONS (19)
  - Fall [Recovered/Resolved]
  - Abasia [Not Recovered/Not Resolved]
  - Joint swelling [Recovered/Resolved]
  - Erythema [Not Recovered/Not Resolved]
  - Local swelling [Not Recovered/Not Resolved]
  - Stress [Unknown]
  - Emotional disorder [Unknown]
  - Facial pain [Not Recovered/Not Resolved]
  - Investigation abnormal [Recovered/Resolved]
  - Blister [Recovered/Resolved]
  - Faeces discoloured [Recovered/Resolved]
  - Skin discolouration [Recovered/Resolved]
  - Rash [Not Recovered/Not Resolved]
  - Urticaria [Not Recovered/Not Resolved]
  - Arthralgia [Not Recovered/Not Resolved]
  - Chills [Not Recovered/Not Resolved]
  - Hypersensitivity [Recovered/Resolved]
  - Nausea [Not Recovered/Not Resolved]
  - Fatigue [Recovered/Resolved]
